FAERS Safety Report 7248698-7 (Version None)
Quarter: 2011Q1

REPORT INFORMATION
  Report Type: 
  Country: None (occurrence: None)
  Receive Date: 20110128
  Receipt Date: 20110114
  Transmission Date: 20110831
  Serious: Yes (Other)
  Sender: FDA-Public Use
  Company Number: AR-AMGEN-ARGSP2011004435

PATIENT
  Sex: Female

DRUGS (12)
  1. IBUPROFEN [Suspect]
     Indication: PAIN
     Dosage: UNK
  2. OMEPRAZOLE [Suspect]
     Dosage: 20 MG, 1X/DAY
  3. DELTISON [Suspect]
     Dosage: 4 MG, 1X/DAY
  4. FACTOR AG [Suspect]
     Dosage: 200 MG, 1X/DAY
  5. LEFLUNOMIDE [Suspect]
     Dosage: 20 MG, 1X/DAY
  6. ENBREL [Suspect]
     Indication: RHEUMATOID ARTHRITIS
     Dosage: UNK
     Dates: start: 20080501, end: 20100901
  7. NAPROXEN [Suspect]
     Dosage: 500 MG, 2X/DAY
  8. ATENOLOL [Suspect]
     Dosage: 0.25 MG, 1X/DAY
  9. IBANDRONATE SODIUM [Suspect]
     Dosage: 15 MG, WEEKLY
  10. ALPLAX [Suspect]
     Dosage: UNK
  11. FOLIC ACID [Suspect]
     Dosage: 5 MG, WEEKLY
  12. CALCIUM WITH VITAMIN D [Concomitant]
     Dosage: 400 MG, 1X/DAY

REACTIONS (2)
  - ANAL HAEMORRHAGE [None]
  - GASTROINTESTINAL INFLAMMATION [None]
